FAERS Safety Report 13581228 (Version 1)
Quarter: 2017Q2

REPORT INFORMATION
  Report Type: Spontaneous
  Country: US (occurrence: US)
  Receive Date: 20170525
  Receipt Date: 20170525
  Transmission Date: 20170830
  Serious: Yes (Other)
  Sender: FDA-Public Use
  Company Number: US-SAGENTPRD-2017-US-000030

PATIENT
  Age: 63 Year
  Sex: Male
  Weight: 101.6 kg

DRUGS (22)
  1. NO DRUG NAME [Concomitant]
  2. NO DRUG NAME [Concomitant]
  3. NO DRUG NAME [Concomitant]
  4. NO DRUG NAME [Concomitant]
  5. NO DRUG NAME [Concomitant]
  6. NO DRUG NAME [Concomitant]
  7. NO DRUG NAME [Concomitant]
  8. NO DRUG NAME [Concomitant]
  9. NO DRUG NAME [Concomitant]
  10. NO DRUG NAME [Concomitant]
  11. NO DRUG NAME [Concomitant]
  12. NO DRUG NAME [Concomitant]
  13. HEPARIN SODIUM INJECTION, MDV, 10 ML, 1000 UNIT/ML [Suspect]
     Active Substance: HEPARIN SODIUM
     Dosage: TITRATED
     Route: 042
     Dates: start: 20170406, end: 20170406
  14. NO DRUG NAME [Concomitant]
  15. NO DRUG NAME [Concomitant]
  16. NO DRUG NAME [Concomitant]
  17. NO DRUG NAME [Concomitant]
  18. NO DRUG NAME [Concomitant]
  19. NO DRUG NAME [Concomitant]
  20. NO DRUG NAME [Concomitant]
  21. NO DRUG NAME [Concomitant]
  22. NO DRUG NAME [Concomitant]

REACTIONS (1)
  - Drug ineffective [Unknown]

NARRATIVE: CASE EVENT DATE: 20170406
